FAERS Safety Report 10165431 (Version 2)
Quarter: 2014Q4

REPORT INFORMATION
  Report Type: Spontaneous
  Country: US (occurrence: US)
  Receive Date: 20140510
  Receipt Date: 20141205
  Transmission Date: 20150528
  Serious: No
  Sender: FDA-Public Use
  Company Number: US-BRISTOL-MYERS SQUIBB COMPANY-19835933

PATIENT
  Age: 73 Year
  Sex: Female
  Weight: 87.07 kg

DRUGS (3)
  1. BYDUREON [Suspect]
     Active Substance: EXENATIDE
     Indication: TYPE 2 DIABETES MELLITUS
     Dosage: LOT: AAA0287 + EXP: AUG2016
     Route: 058
  2. BENICAR [Concomitant]
     Active Substance: OLMESARTAN MEDOXOMIL
     Dosage: BENICAR 40/25
  3. METFORMIN [Concomitant]
     Active Substance: METFORMIN HYDROCHLORIDE

REACTIONS (5)
  - Injection site extravasation [Unknown]
  - Injection site nodule [Recovered/Resolved]
  - Weight decreased [Unknown]
  - Blood glucose increased [Unknown]
  - Drug dose omission [Unknown]
